FAERS Safety Report 7949469-6 (Version None)
Quarter: 2011Q4

REPORT INFORMATION
  Report Type: 
  Country: None (occurrence: None)
  Receive Date: 20111123
  Receipt Date: 20111114
  Transmission Date: 20120403
  Serious: Yes (Hospitalization)
  Sender: FDA-Public Use
  Company Number: 11-001222

PATIENT
  Age: 60 Year
  Sex: Female
  Weight: 73.9 kg

DRUGS (9)
  1. CENTRUM (ASCORBIC ACID, BETACAROTENE, COLECALCIFEROL, FOLIC ACID, MINE [Concomitant]
  2. FISH OIL (FISH OIL) [Concomitant]
  3. FEMHRT [Suspect]
     Indication: MENOPAUSAL SYMPTOMS
     Dosage: SEE IMAGE
     Route: 048
     Dates: start: 20110401, end: 20110401
  4. FEMHRT [Suspect]
     Indication: MENOPAUSAL SYMPTOMS
     Dosage: SEE IMAGE
     Route: 048
     Dates: start: 20110401, end: 20110401
  5. FEMHRT [Suspect]
     Indication: MENOPAUSAL SYMPTOMS
     Dosage: SEE IMAGE
     Route: 048
     Dates: start: 20040101, end: 20110401
  6. FEMHRT [Suspect]
     Indication: MENOPAUSAL SYMPTOMS
     Dosage: SEE IMAGE
     Route: 048
     Dates: start: 20110926
  7. LIPITOR [Concomitant]
  8. CALTRATE (CALCIUM CARBONATE) [Concomitant]
  9. LISINOPRIL (LISINOPRIL DIHYDRATE) [Concomitant]

REACTIONS (15)
  - ANOSMIA [None]
  - HYPERTENSION [None]
  - SENSATION OF HEAVINESS [None]
  - BALANCE DISORDER [None]
  - AGEUSIA [None]
  - DYSPNOEA [None]
  - OEDEMA PERIPHERAL [None]
  - FEELING ABNORMAL [None]
  - HYPOHIDROSIS [None]
  - VISUAL IMPAIRMENT [None]
  - CHEST DISCOMFORT [None]
  - SPEECH DISORDER [None]
  - SLUGGISHNESS [None]
  - HALLUCINATION [None]
  - PALPITATIONS [None]
